FAERS Safety Report 15018130 (Version 1)
Quarter: 2018Q2

REPORT INFORMATION
  Report Type: Spontaneous
  Country: US (occurrence: US)
  Receive Date: 20180615
  Receipt Date: 20180615
  Transmission Date: 20180711
  Serious: No
  Sender: FDA-Public Use
  Company Number: US-BAYER-2018-111885

PATIENT
  Age: 45 Year
  Sex: Female

DRUGS (3)
  1. ACARBOSE. [Suspect]
     Active Substance: ACARBOSE
     Indication: POSTPRANDIAL HYPOGLYCAEMIA
     Dosage: UNK
  2. DIAZOXIDE [Concomitant]
     Active Substance: DIAZOXIDE
     Indication: POSTPRANDIAL HYPOGLYCAEMIA
     Dosage: UNK
  3. OCTREOTIDE. [Concomitant]
     Active Substance: OCTREOTIDE
     Indication: POSTPRANDIAL HYPOGLYCAEMIA
     Dosage: UNK

REACTIONS (3)
  - Drug ineffective for unapproved indication [None]
  - Weight decreased [None]
  - Off label use [None]
